FAERS Safety Report 9841180 (Version 1)
Quarter: 2014Q1

REPORT INFORMATION
  Report Type: Spontaneous
  Country: FR (occurrence: FR)
  Receive Date: 20140124
  Receipt Date: 20140124
  Transmission Date: 20141002
  Serious: Yes (Hospitalization, Other)
  Sender: FDA-Public Use
  Company Number: FR-PFIZER INC-2014019161

PATIENT
  Age: 76 Year
  Sex: Female

DRUGS (12)
  1. ADVIL [Suspect]
     Indication: ARTHRALGIA
     Dosage: UNK
     Route: 048
     Dates: start: 201309, end: 201309
  2. ADVIL [Suspect]
     Indication: FACIAL NEURALGIA
  3. PROCORALAN [Concomitant]
     Dosage: 5 MG, UNK
  4. APROVEL [Concomitant]
     Dosage: UNK
  5. AMLOR [Concomitant]
     Dosage: 5 MG, UNK
  6. IDEOS [Concomitant]
     Dosage: 500 MG/400 IU
  7. INEXIUM /01479302/ [Concomitant]
     Dosage: 40 MG, UNK
  8. KALEORID LP [Concomitant]
     Dosage: 1000 MG, UNK
  9. ACTONEL [Concomitant]
     Dosage: UNK
  10. IMETH [Concomitant]
     Dosage: UNK
  11. SPECIAFOLDINE [Concomitant]
     Dosage: UNK
  12. UVEDOSE [Concomitant]
     Dosage: UNK

REACTIONS (2)
  - Renal failure acute [Recovered/Resolved]
  - Haemolytic uraemic syndrome [Recovered/Resolved]
